FAERS Safety Report 14495547 (Version 8)
Quarter: 2018Q2

REPORT INFORMATION
  Report Type: Spontaneous
  Country: JP (occurrence: JP)
  Receive Date: 20180206
  Receipt Date: 20180501
  Transmission Date: 20180711
  Serious: Yes (Death, Hospitalization, Disabling, Other)
  Sender: FDA-Public Use
  Company Number: JP-009507513-1705JPN000793J

PATIENT
  Age: 62 Year
  Sex: Male
  Weight: 47 kg

DRUGS (19)
  1. OXINORM [Concomitant]
     Dosage: 5 MG, PRN
     Route: 048
  2. KEYTRUDA [Suspect]
     Active Substance: PEMBROLIZUMAB
     Indication: LUNG ADENOCARCINOMA
     Dosage: 200 MG, Q3W
     Route: 041
     Dates: start: 20170310, end: 20170418
  3. PRAVASTATIN NA [Concomitant]
     Active Substance: PRAVASTATIN SODIUM
     Dosage: 5.0 MG, QD
     Route: 048
     Dates: end: 20170522
  4. FENTOS [Suspect]
     Active Substance: FENTANYL
     Dosage: 2 MG, QD
     Route: 062
     Dates: start: 20170418, end: 20170424
  5. DECADRON [Suspect]
     Active Substance: DEXAMETHASONE
     Indication: MALIGNANT NEOPLASM PROGRESSION
     Dosage: 2.0 MG, BID
     Route: 048
     Dates: start: 20170327, end: 20170329
  6. METOCLOPRAMIDE. [Concomitant]
     Active Substance: METOCLOPRAMIDE
     Indication: PROPHYLAXIS
     Dosage: 5.0 MG, TID
     Route: 048
     Dates: end: 20170522
  7. FENTOS [Suspect]
     Active Substance: FENTANYL
     Dosage: 2 MG, QD
     Route: 062
     Dates: start: 20170428, end: 20170511
  8. FENTOS [Suspect]
     Active Substance: FENTANYL
     Dosage: 3 MG, QD
     Route: 062
     Dates: start: 20170512, end: 20170527
  9. DECADRON [Suspect]
     Active Substance: DEXAMETHASONE
     Dosage: 2.0 MG, BID
     Route: 048
     Dates: start: 20170330, end: 20170401
  10. MAGMITT [Concomitant]
     Active Substance: MAGNESIUM OXIDE
     Dosage: 330 MG, TID
     Route: 048
     Dates: end: 20170522
  11. ADONA [Concomitant]
     Active Substance: CARBAZOCHROME SODIUM SULFONATE
     Dosage: 30 MG, TID
     Route: 048
     Dates: end: 20170317
  12. TRAMCET [Concomitant]
     Active Substance: ACETAMINOPHEN\TRAMADOL
     Dosage: 1 DF, QID
     Route: 048
     Dates: end: 20170317
  13. OXYCONTIN [Concomitant]
     Active Substance: OXYCODONE HYDROCHLORIDE
     Dosage: 5 MG, TID
     Route: 048
     Dates: end: 20170317
  14. FENTOS [Suspect]
     Active Substance: FENTANYL
     Indication: CANCER PAIN
     Dosage: 1 MG, QD
     Route: 062
     Dates: start: 20170330, end: 20170417
  15. FENTOS [Suspect]
     Active Substance: FENTANYL
     Dosage: 3.0 MG, QD
     Route: 062
     Dates: start: 20170425, end: 20170427
  16. DECADRON [Suspect]
     Active Substance: DEXAMETHASONE
     Dosage: 2.0 MG, BID
     Route: 048
     Dates: start: 20170402, end: 20170404
  17. DECADRON [Suspect]
     Active Substance: DEXAMETHASONE
     Dosage: 0.5 MG, QD
     Route: 048
     Dates: start: 20170405, end: 20170407
  18. SPIOLTO RESPIMAT [Concomitant]
     Active Substance: OLODATEROL HYDROCHLORIDE\TIOTROPIUM BROMIDE MONOHYDRATE
     Dosage: 2.0 DF, QD
     Route: 055
  19. MIYA-BM [Concomitant]
     Active Substance: CLOSTRIDIUM BUTYRICUM SPORES STRAIN M-55
     Dosage: 1 G, TID
     Route: 048
     Dates: end: 20170522

REACTIONS (13)
  - Pneumonia aspiration [Fatal]
  - Malignant neoplasm progression [Not Recovered/Not Resolved]
  - Haemoptysis [Recovering/Resolving]
  - Interstitial lung disease [Fatal]
  - Cerebral haemorrhage [Not Recovered/Not Resolved]
  - Stomatitis [Not Recovered/Not Resolved]
  - Cancer pain [Not Recovered/Not Resolved]
  - Pyrexia [Not Recovered/Not Resolved]
  - Neuropathy peripheral [Not Recovered/Not Resolved]
  - Dyspnoea [Fatal]
  - Delirium [Recovering/Resolving]
  - Pyrexia [Recovered/Resolved]
  - Oral candidiasis [Not Recovered/Not Resolved]

NARRATIVE: CASE EVENT DATE: 20170315
